FAERS Safety Report 7903899-7 (Version None)
Quarter: 2011Q4

REPORT INFORMATION
  Report Type: 
  Country: None (occurrence: None)
  Receive Date: 20111109
  Receipt Date: 20111102
  Transmission Date: 20120403
  Serious: Yes (Other)
  Sender: FDA-Public Use
  Company Number: US-JNJFOC-20111102527

PATIENT
  Age: 66 Year
  Sex: Male
  Weight: 90.72 kg

DRUGS (6)
  1. COUMADIN [Concomitant]
     Indication: ANTICOAGULANT THERAPY
     Dosage: 4 OR 5 MG
     Route: 065
     Dates: start: 20070101
  2. LIPITOR [Concomitant]
     Indication: BLOOD CHOLESTEROL INCREASED
     Route: 065
     Dates: start: 20070101
  3. TOPROL-XL [Concomitant]
     Indication: HYPERTENSION
     Route: 065
     Dates: start: 20070101
  4. LOTREL [Concomitant]
     Indication: HYPERTENSION
     Dosage: 5/10 MG
     Route: 065
     Dates: start: 20070101
  5. NEXIUM [Concomitant]
     Indication: GASTROOESOPHAGEAL REFLUX DISEASE
     Route: 065
     Dates: start: 20070101
  6. COOL MINT LISTERINE [Suspect]
     Indication: DENTAL DISORDER PROPHYLAXIS
     Dosage: 1/2 CAPFUL
     Route: 048

REACTIONS (3)
  - TONGUE BLISTERING [None]
  - PRODUCT QUALITY ISSUE [None]
  - OROPHARYNGEAL BLISTERING [None]
